FAERS Safety Report 6279969-9 (Version None)
Quarter: 2009Q3

REPORT INFORMATION
  Report Type: 
  Country: None (occurrence: None)
  Receive Date: 20090723
  Receipt Date: 20090713
  Transmission Date: 20100115
  Serious: Yes (Hospitalization)
  Sender: FDA-Public Use
  Company Number: US-SANOFI-SYNTHELABO-F03200900071

PATIENT
  Sex: Male
  Weight: 93.9 kg

DRUGS (10)
  1. CREON [Concomitant]
     Indication: DRUG USE FOR UNKNOWN INDICATION
     Dosage: 4 TIMES A DAY WITH MEALS
     Route: 065
  2. COMPAZINE [Concomitant]
     Indication: DRUG USE FOR UNKNOWN INDICATION
     Dosage: 10MG EVERY 8 HOURS AS NEEDED
     Route: 048
  3. DIOVAN [Concomitant]
     Indication: DRUG USE FOR UNKNOWN INDICATION
     Dosage: 160/25 MG DAILY
     Route: 048
  4. REMERON [Concomitant]
     Indication: DRUG USE FOR UNKNOWN INDICATION
     Route: 048
  5. DOCETAXEL [Suspect]
     Indication: OESOPHAGEAL ADENOCARCINOMA
     Route: 042
     Dates: start: 20090701, end: 20090701
  6. METOPROLOL SUCCINATE [Concomitant]
     Indication: DRUG USE FOR UNKNOWN INDICATION
     Route: 048
  7. REGLAN [Concomitant]
     Indication: DRUG USE FOR UNKNOWN INDICATION
     Route: 048
  8. BEVACIZUMAB [Suspect]
     Indication: OESOPHAGEAL ADENOCARCINOMA
     Dosage: 7.5 MG/KG D1/22 DAY CYCLE
     Route: 042
     Dates: start: 20090701, end: 20090701
  9. OXALIPLATIN [Suspect]
     Indication: OESOPHAGEAL ADENOCARCINOMA
     Route: 042
     Dates: start: 20090701, end: 20090701
  10. XANAX [Concomitant]
     Indication: ANXIETY
     Dosage: 0.25MG TO 0.5MG EVERY 6 TO 8 HOURS AS NEEDED
     Route: 065

REACTIONS (3)
  - DYSURIA [None]
  - GASTROINTESTINAL PERFORATION [None]
  - PYREXIA [None]
